FAERS Safety Report 19540660 (Version 1)
Quarter: 2021Q3

REPORT INFORMATION
  Report Type: Report from Study
  Country: None (occurrence: US)
  Receive Date: 20210713
  Receipt Date: 20210713
  Transmission Date: 20211014
  Serious: Yes (Other)
  Sender: FDA-Public Use
  Company Number: US-ABBVIE-21K-163-3984474-00

PATIENT
  Sex: Male

DRUGS (2)
  1. VENCLEXTA [Suspect]
     Active Substance: VENETOCLAX
     Indication: ACUTE MYELOID LEUKAEMIA
     Route: 048
     Dates: start: 20210617
  2. DACOGEN [Suspect]
     Active Substance: DECITABINE
     Indication: PRODUCT USED FOR UNKNOWN INDICATION
     Route: 065

REACTIONS (13)
  - Haemoglobin abnormal [Unknown]
  - Dyspnoea [Unknown]
  - White blood cell count decreased [Unknown]
  - Dizziness [Unknown]
  - Platelet count decreased [Unknown]
  - Chromaturia [Unknown]
  - Impaired healing [Unknown]
  - Rash macular [Unknown]
  - Fall [Unknown]
  - Pain in extremity [Unknown]
  - Hypotension [Unknown]
  - Renal impairment [Unknown]
  - Dementia [Not Recovered/Not Resolved]

NARRATIVE: CASE EVENT DATE: 2021
